FAERS Safety Report 10393454 (Version 1)
Quarter: 2014Q3

REPORT INFORMATION
  Report Type: Report from Study
  Country: IT (occurrence: IT)
  Receive Date: 20140819
  Receipt Date: 20140819
  Transmission Date: 20150326
  Serious: Yes (Other)
  Sender: FDA-Public Use
  Company Number: IT-BAYER-2014-123926

PATIENT
  Age: 72 Year
  Sex: Male

DRUGS (1)
  1. EXTAVIA [Suspect]
     Active Substance: INTERFERON BETA-1B
     Indication: PRODUCT USED FOR UNKNOWN INDICATION
     Dosage: UNK UNK, QOD

REACTIONS (8)
  - Loss of control of legs [None]
  - Inflammation [None]
  - Osteomyelitis [None]
  - Encephalitis [None]
  - Drug ineffective [None]
  - Optic neuritis [None]
  - Sensory disturbance [None]
  - Feeling hot [None]
